FAERS Safety Report 20730280 (Version 1)
Quarter: 2022Q2

REPORT INFORMATION
  Report Type: Spontaneous
  Country: CA (occurrence: CA)
  Receive Date: 20220420
  Receipt Date: 20220420
  Transmission Date: 20220721
  Serious: Yes (Hospitalization)
  Sender: FDA-Public Use
  Company Number: CA-PFIZER INC-202200555085

PATIENT
  Age: 33 Year
  Sex: Female
  Weight: 64 kg

DRUGS (5)
  1. LINEZOLID [Suspect]
     Active Substance: LINEZOLID
     Indication: Tuberculosis
     Dosage: 1500 MG, DAILY
     Route: 048
  2. LINEZOLID [Suspect]
     Active Substance: LINEZOLID
     Dosage: 1200 MG
     Route: 048
  3. ISONIAZID [Concomitant]
     Active Substance: ISONIAZID
     Dosage: UNK
  4. MOXIFLOXACIN [Concomitant]
     Active Substance: MOXIFLOXACIN
     Dosage: UNK
  5. RIFAMPIN [Concomitant]
     Active Substance: RIFAMPIN
     Dosage: UNK

REACTIONS (7)
  - Arthralgia [Recovering/Resolving]
  - Blindness [Recovering/Resolving]
  - Neuropathy peripheral [Recovering/Resolving]
  - Optic atrophy [Recovering/Resolving]
  - Optic neuritis [Recovering/Resolving]
  - Paraesthesia [Recovering/Resolving]
  - Off label use [Unknown]
